FAERS Safety Report 6345541-5 (Version None)
Quarter: 2009Q3

REPORT INFORMATION
  Report Type: 
  Country: None (occurrence: None)
  Receive Date: 20090909
  Receipt Date: 20090826
  Transmission Date: 20100115
  Serious: Yes (Other)
  Sender: FDA-Public Use
  Company Number: AU-PFIZER INC-2009260286

PATIENT

DRUGS (1)
  1. CHAMPIX [Suspect]
     Dosage: 1 MG, UNK

REACTIONS (8)
  - ABDOMINAL DISCOMFORT [None]
  - APATHY [None]
  - DEPRESSED MOOD [None]
  - DEREALISATION [None]
  - DIZZINESS [None]
  - INCORRECT DOSE ADMINISTERED [None]
  - MALAISE [None]
  - MEMORY IMPAIRMENT [None]
